FAERS Safety Report 6200953-5 (Version None)
Quarter: 2009Q2

REPORT INFORMATION
  Report Type: 
  Country: None (occurrence: None)
  Receive Date: 20090523
  Receipt Date: 20081201
  Transmission Date: 20091009
  Serious: No
  Sender: FDA-Public Use
  Company Number: US-ALEXION-A200800383

PATIENT
  Sex: Male

DRUGS (3)
  1. SOLIRIS [Suspect]
     Indication: PAROXYSMAL NOCTURNAL HAEMOGLOBINURIA
     Dosage: 600 MG, QW X 4 WKS
     Route: 042
     Dates: start: 20081001, end: 20080101
  2. SOLIRIS [Suspect]
     Dosage: 900 MG, Q2WKS
     Route: 042
  3. NORVASC [Concomitant]
     Dosage: UNK, QD
     Route: 048

REACTIONS (2)
  - DRY SKIN [None]
  - RASH [None]
